FAERS Safety Report 4262195-2 (Version None)
Quarter: 2004Q1

REPORT INFORMATION
  Report Type: 
  Country: None (occurrence: None)
  Receive Date: 20040102
  Receipt Date: 20031113
  Transmission Date: 20041129
  Serious: Yes (Life-Threatening, Hospitalization, Disabling)
  Sender: FDA-Public Use
  Company Number: WAES 0311BEL00027

PATIENT
  Age: 78 Year
  Sex: Female
  Weight: 62 kg

DRUGS (7)
  1. ACEBUTOLOL HYDROCHLORIDE [Concomitant]
     Route: 048
     Dates: start: 20000101
  2. FUROSEMIDE [Concomitant]
     Route: 048
     Dates: start: 20021211
  3. COZAAR [Concomitant]
     Route: 048
     Dates: start: 20020514
  4. PRAZOSIN HYDROCHLORIDE [Concomitant]
     Route: 048
     Dates: start: 20000101
  5. VIOXX [Suspect]
     Indication: TORTICOLLIS
     Route: 048
     Dates: start: 20030814, end: 20030818
  6. WARFARIN SODIUM [Suspect]
     Indication: THROMBOSIS PROPHYLAXIS
     Route: 048
     Dates: start: 20021211, end: 20030818
  7. WARFARIN SODIUM [Suspect]
     Route: 048
     Dates: start: 20030101

REACTIONS (2)
  - GASTRIC HAEMORRHAGE [None]
  - MYOCARDIAL INFARCTION [None]
